FAERS Safety Report 9983386 (Version 3)
Quarter: 2014Q2

REPORT INFORMATION
  Report Type: Spontaneous
  Country: US (occurrence: US)
  Receive Date: 20140307
  Receipt Date: 20140627
  Transmission Date: 20141212
  Serious: Yes (Other)
  Sender: FDA-Public Use
  Company Number: US-PFIZER INC-2014063212

PATIENT
  Age: 56 Year
  Sex: Female

DRUGS (3)
  1. LIPITOR [Suspect]
     Indication: LOW DENSITY LIPOPROTEIN INCREASED
     Dosage: 1 DF, DAILY
     Route: 048
     Dates: start: 2006, end: 2012
  2. LIPITOR [Suspect]
     Indication: CARDIOVASCULAR EVENT PROPHYLAXIS
  3. DIGOXIN [Concomitant]
     Indication: HEART RATE INCREASED
     Dosage: TWICE DAILY, PLUS HALF MORE ON MONDAY^S, WEDNESDAY^S AND FRIDAY^S
     Dates: start: 1969

REACTIONS (1)
  - Type 2 diabetes mellitus [Not Recovered/Not Resolved]
